FAERS Safety Report 25966536 (Version 1)
Quarter: 2025Q4

REPORT INFORMATION
  Report Type: Spontaneous
  Country: EU (occurrence: None)
  Receive Date: 20251028
  Receipt Date: 20251028
  Transmission Date: 20260118
  Serious: Yes (Death, Other)
  Sender: ENDO
  Company Number: EU-ENDO USA, INC.-2025-002166

PATIENT
  Age: 29 Year
  Sex: Male

DRUGS (5)
  1. TESTOSTERONE [Suspect]
     Active Substance: TESTOSTERONE
     Indication: Performance enhancing product use
     Dosage: UNK UNKNOWN, UNKNOWN
     Route: 065
  2. NANDROLONE [Suspect]
     Active Substance: NANDROLONE
     Indication: Performance enhancing product use
     Dosage: UNK UNKNOWN, UNKNOWN
     Route: 065
  3. ALCOHOL [Suspect]
     Active Substance: ALCOHOL
     Indication: Product used for unknown indication
     Dosage: UNK UNKNOWN, UNKNOWN
     Route: 065
  4. MORPHINE [Suspect]
     Active Substance: MORPHINE
     Indication: Product used for unknown indication
     Dosage: UNK UNKNOWN, UNKNOWN
     Route: 065
  5. HERBALS\TETRAHYDROCANNABINOL UNSPECIFIED [Suspect]
     Active Substance: HERBALS\TETRAHYDROCANNABINOL UNSPECIFIED
     Indication: Product used for unknown indication
     Dosage: UNK UNKNOWN, UNKNOWN
     Route: 065

REACTIONS (4)
  - Toxicity to various agents [Fatal]
  - Testicular atrophy [Unknown]
  - Drug abuse [Unknown]
  - Prescription drug used without a prescription [Unknown]
